FAERS Safety Report 13609038 (Version 2)
Quarter: 2017Q3

REPORT INFORMATION
  Report Type: Spontaneous
  Country: US (occurrence: US)
  Receive Date: 20170602
  Receipt Date: 20170818
  Transmission Date: 20171127
  Serious: No
  Sender: FDA-Public Use
  Company Number: US-RARE DISEASE THERAPEUTICS, INC.-2021500

PATIENT
  Age: 7 Year
  Sex: Male
  Weight: 19 kg

DRUGS (14)
  1. ACETAMINOPHEN. [Concomitant]
     Active Substance: ACETAMINOPHEN
  2. PURIXAN [Suspect]
     Active Substance: MERCAPTOPURINE
     Indication: ACUTE LYMPHOCYTIC LEUKAEMIA
     Dates: start: 20160130
  3. METHOTREXATE. [Concomitant]
     Active Substance: METHOTREXATE
  4. ACYCLOVIR. [Concomitant]
     Active Substance: ACYCLOVIR
  5. IBUPROFEN. [Concomitant]
     Active Substance: IBUPROFEN
  6. MUCINEX [Concomitant]
     Active Substance: GUAIFENESIN
  7. LACTULOSE. [Concomitant]
     Active Substance: LACTULOSE
  8. LORATADINE. [Concomitant]
     Active Substance: LORATADINE
  9. DIPHENHYDRAMINE. [Concomitant]
     Active Substance: DIPHENHYDRAMINE
  10. ZOFRAN [Concomitant]
     Active Substance: ONDANSETRON HYDROCHLORIDE
  11. DEXAMETHASONE. [Concomitant]
     Active Substance: DEXAMETHASONE
  12. MEPRON [Concomitant]
     Active Substance: ATOVAQUONE
  13. EMLA [Concomitant]
     Active Substance: LIDOCAINE\PRILOCAINE
  14. SENNA [Concomitant]
     Active Substance: SENNA LEAF\SENNOSIDES\SENNOSIDES A AND B

REACTIONS (1)
  - Ear infection [Recovered/Resolved]

NARRATIVE: CASE EVENT DATE: 20170511
